FAERS Safety Report 17533126 (Version 9)
Quarter: 2020Q3

REPORT INFORMATION
  Report Type: Report from Study
  Country: JP (occurrence: JP)
  Receive Date: 20200312
  Receipt Date: 20200625
  Transmission Date: 20201104
  Serious: Yes (Hospitalization)
  Sender: FDA-Public Use
  Company Number: JP-DAIICHI SANKYO (CHINA) HOLDINGS CO., LTD.-DSJ-2019-121520

PATIENT

DRUGS (24)
  1. FERROUS SODIUM CITRATE [Concomitant]
     Active Substance: SODIUM FERROUS CITRATE
     Indication: ANAEMIA
     Dosage: 100 MG, QD
     Route: 048
     Dates: start: 20190313, end: 20190717
  2. FERROUS SODIUM CITRATE [Concomitant]
     Active Substance: SODIUM FERROUS CITRATE
     Dosage: 100 MG, QD
     Route: 048
     Dates: start: 20190622, end: 20190717
  3. TRASTUZUMAB DERUXTECAN. [Suspect]
     Active Substance: TRASTUZUMAB DERUXTECAN
     Dosage: 3.2 MG/KG, ONCE EVERY 3 WK
     Route: 041
     Dates: start: 20200312, end: 20200423
  4. TRASTUZUMAB DERUXTECAN. [Suspect]
     Active Substance: TRASTUZUMAB DERUXTECAN
     Dosage: 3.2 MG/KG, ONCE EVERY 3 WK
     Route: 041
     Dates: start: 20200526, end: 20200526
  5. ENSURE [Concomitant]
     Active Substance: AMINO ACIDS\DEXTROSE\ELECTROLYTES NOS\SOYBEAN OIL\VITAMINS
     Indication: HYPOALBUMINAEMIA
     Dosage: 0.25 L, QD
     Route: 048
     Dates: start: 20190418, end: 201905
  6. LOXOPROFEN SODIUM HYDRATE [Concomitant]
     Active Substance: LOXOPROFEN SODIUM DIHYDRATE
     Indication: CANCER PAIN
     Dosage: 60 MG, AS NEEDED
     Route: 048
     Dates: start: 2016
  7. REBAMIPIDE [Concomitant]
     Active Substance: REBAMIPIDE
     Indication: MUCOSAL DISORDER
     Dosage: 100 MG, AS NEEDED
     Route: 048
     Dates: start: 2016
  8. WHITE PETROLATUM [Concomitant]
     Active Substance: PETROLATUM
     Indication: PROPHYLAXIS
     Dosage: PROPER QUANTITIY, QD
     Route: 062
     Dates: start: 20190312
  9. IOPAMIDOL [Concomitant]
     Active Substance: IOPAMIDOL
     Indication: SCAN WITH CONTRAST
     Dosage: 0.1 L, PER 6 WEEKS
     Route: 042
     Dates: start: 20190328
  10. TRASTUZUMAB DERUXTECAN. [Suspect]
     Active Substance: TRASTUZUMAB DERUXTECAN
     Indication: HER2 POSITIVE BREAST CANCER
     Dosage: 5.4 MG/KG, ONCE EVERY 3 WK
     Route: 041
     Dates: start: 20190404, end: 20190606
  11. TRASTUZUMAB DERUXTECAN. [Suspect]
     Active Substance: TRASTUZUMAB DERUXTECAN
     Dosage: 4.4 MG/KG, ONCE EVERY 3 WK
     Route: 041
     Dates: start: 20190718, end: 20190829
  12. FESOTERODINE FUMARATE. [Concomitant]
     Active Substance: FESOTERODINE FUMARATE
     Indication: HYPERTONIC BLADDER
     Dosage: 4 MG, QD
     Route: 048
     Dates: start: 20171111, end: 201905
  13. MAGNESIUM OXIDE. [Concomitant]
     Active Substance: MAGNESIUM OXIDE
     Indication: CONSTIPATION
     Dosage: 330 MG, AS NEEDED
     Route: 048
     Dates: start: 2016
  14. V ROHTO [Concomitant]
     Indication: CONJUNCTIVAL DISORDER
     Dosage: 1 DROP, 5?6 TIMES
     Route: 031
     Dates: start: 20190321, end: 20190401
  15. BORRAGINOL A                       /01370101/ [Concomitant]
     Indication: HAEMORRHOIDS
     Dosage: 1 DF, AS NEEDED
     Route: 054
     Dates: start: 20190411, end: 20190411
  16. HYDROXYZINE HYDROCHLORIDE. [Concomitant]
     Active Substance: HYDROXYZINE HYDROCHLORIDE
     Indication: ANAEMIA
     Dosage: 25 MG, AS NEEDED
     Route: 042
     Dates: start: 20190607, end: 20190609
  17. METOCLOPRAMIDE HYDROCHLORIDE. [Concomitant]
     Active Substance: METOCLOPRAMIDE HYDROCHLORIDE
     Indication: ANAEMIA
     Dosage: 10 MG, AS NEEDED
     Route: 042
     Dates: start: 20190607, end: 20190609
  18. TRASTUZUMAB DERUXTECAN. [Suspect]
     Active Substance: TRASTUZUMAB DERUXTECAN
     Dosage: 4.4 MG/KG, ONCE EVERY 3 WK
     Route: 041
     Dates: start: 20191001, end: 20191001
  19. SODIUM HYALURONATE [Concomitant]
     Active Substance: HYALURONATE SODIUM
     Indication: DRY EYE
     Dosage: 1 DROP, 5?6 TIMES
     Route: 031
     Dates: start: 20190401
  20. TRASTUZUMAB DERUXTECAN. [Suspect]
     Active Substance: TRASTUZUMAB DERUXTECAN
     Dosage: 4.4 MG/KG, ONCE EVERY 3 WK
     Route: 041
     Dates: start: 20191128, end: 20200220
  21. BETAMETHASONE VALERATE. [Concomitant]
     Active Substance: BETAMETHASONE VALERATE
     Indication: ECZEMA
     Dosage: PROPER QUANTITIY, AS NEEDED
     Route: 062
     Dates: start: 20190411, end: 20190606
  22. LEVOFLOXACIN HEMIHYDRATE [Concomitant]
     Active Substance: LEVOFLOXACIN
     Indication: PYELONEPHRITIS
     Dosage: 500 MG, AS NEEDED
     Route: 048
     Dates: start: 20190607, end: 20190613
  23. TRASTUZUMAB DERUXTECAN. [Suspect]
     Active Substance: TRASTUZUMAB DERUXTECAN
     Dosage: 4.4 MG/KG, ONCE EVERY 3 WK
     Route: 041
     Dates: start: 20191030, end: 20191030
  24. METRONIDAZOLE. [Concomitant]
     Active Substance: METRONIDAZOLE
     Indication: PROPHYLAXIS
     Dosage: PROPER QUANTITIY, QD
     Route: 062
     Dates: start: 20190129, end: 201903

REACTIONS (1)
  - Cystitis haemorrhagic [Recovered/Resolved]

NARRATIVE: CASE EVENT DATE: 20190607
